FAERS Safety Report 15820581 (Version 1)
Quarter: 2019Q1

REPORT INFORMATION
  Report Type: Spontaneous
  Country: US (occurrence: US)
  Receive Date: 20190111
  Receipt Date: 20190111
  Transmission Date: 20190417
  Serious: Yes (Life-Threatening)
  Sender: FDA-Public Use
  Company Number: None

PATIENT
  Age: 63 Year
  Sex: Female

DRUGS (22)
  1. HUMIRA [Suspect]
     Active Substance: ADALIMUMAB
     Indication: PSORIATIC ARTHROPATHY
     Dosage: ?          OTHER FREQUENCY:EVERY 2 WEEKS;?
     Route: 058
     Dates: start: 20171130
  2. BYSTOLIC [Concomitant]
     Active Substance: NEBIVOLOL HYDROCHLORIDE
  3. PREDNISONE TABLET [Concomitant]
     Active Substance: PREDNISONE
  4. DULOXETINE. [Concomitant]
     Active Substance: DULOXETINE
  5. LISINOPRIL. [Concomitant]
     Active Substance: LISINOPRIL
  6. METFORMIN [Concomitant]
     Active Substance: METFORMIN HYDROCHLORIDE
  7. LIOTHYRONINE [Concomitant]
     Active Substance: LIOTHYRONINE
  8. LYRICA [Concomitant]
     Active Substance: PREGABALIN
  9. PROAIR HFA [Concomitant]
     Active Substance: ALBUTEROL SULFATE
  10. SYNTHROID [Concomitant]
     Active Substance: LEVOTHYROXINE SODIUM
  11. TRAMADOL. [Concomitant]
     Active Substance: TRAMADOL
  12. CELEBREX [Concomitant]
     Active Substance: CELECOXIB
  13. NOVOLOG [Concomitant]
     Active Substance: INSULIN ASPART
  14. TRESIBA [Concomitant]
     Active Substance: INSULIN DEGLUDEC
  15. FUROSEMIDE. [Concomitant]
     Active Substance: FUROSEMIDE
  16. LANSOPRAZOLE. [Concomitant]
     Active Substance: LANSOPRAZOLE
  17. CRESTOR [Concomitant]
     Active Substance: ROSUVASTATIN CALCIUM
  18. FOLICA ACID [Concomitant]
  19. MONTELUKAST [Concomitant]
     Active Substance: MONTELUKAST SODIUM
  20. K-TAB [Concomitant]
     Active Substance: POTASSIUM CHLORIDE
  21. METHOTREXATE. [Concomitant]
     Active Substance: METHOTREXATE
  22. SYMBICORT [Concomitant]
     Active Substance: BUDESONIDE\FORMOTEROL FUMARATE DIHYDRATE

REACTIONS (1)
  - Myocardial infarction [None]

NARRATIVE: CASE EVENT DATE: 20181130
